FAERS Safety Report 10559809 (Version 5)
Quarter: 2015Q2

REPORT INFORMATION
  Report Type: Spontaneous
  Country: BR (occurrence: None)
  Receive Date: 20141030
  Receipt Date: 20150622
  Transmission Date: 20150821
  Serious: Yes (Hospitalization, Other)
  Sender: FDA-Public Use
  Company Number: B1031536A

PATIENT
  Age: 13 Year
  Sex: Female
  Weight: 43 kg

DRUGS (5)
  1. ATAZANAVIR (ATAZANAVIR) [Concomitant]
     Active Substance: ATAZANAVIR
  2. MARAVIROC [Suspect]
     Active Substance: MARAVIROC
     Indication: HIV INFECTION
     Route: 048
     Dates: start: 20120904, end: 20140224
  3. ABACAVIR (ABACAVIR) [Concomitant]
     Active Substance: ABACAVIR
  4. TENOFOVIR (TENOFOVIR) UNKNOWN [Concomitant]
     Active Substance: TENOFOVIR
  5. RITONAVIR (RITONAVIR) [Concomitant]
     Active Substance: RITONAVIR

REACTIONS (5)
  - Hodgkin^s disease [None]
  - Lymphoma [None]
  - Oropharyngeal pain [None]
  - Pyrexia [None]
  - Lymphadenopathy [None]

NARRATIVE: CASE EVENT DATE: 20140820
